FAERS Safety Report 4743555-X (Version None)
Quarter: 2005Q3

REPORT INFORMATION
  Report Type: 
  Country: None (occurrence: None)
  Receive Date: 20050810
  Receipt Date: 20050810
  Transmission Date: 20060218
  Serious: Yes (Life-Threatening, Other)
  Sender: FDA-Public Use
  Company Number: None

PATIENT
  Sex: Female
  Weight: 42.6381 kg

DRUGS (1)
  1. MACROBID [Suspect]
     Indication: URINARY TRACT INFECTION
     Dosage: ONE TABLE TWICE DAILY
     Dates: start: 20050427, end: 20050508

REACTIONS (3)
  - HEADACHE [None]
  - PAIN IN EXTREMITY [None]
  - RASH [None]
